FAERS Safety Report 21331744 (Version 1)
Quarter: 2022Q3

REPORT INFORMATION
  Report Type: Spontaneous
  Country: NL (occurrence: NL)
  Receive Date: 20220914
  Receipt Date: 20220914
  Transmission Date: 20221026
  Serious: Yes (Life-Threatening)
  Sender: FDA-Public Use
  Company Number: None

PATIENT
  Sex: Female
  Weight: 67 kg

DRUGS (1)
  1. METOCLOPRAMIDE [Suspect]
     Active Substance: METOCLOPRAMIDE
     Indication: Nausea
     Dosage: 1-3DD 1 TABLET, AT LEAST 6 HOURS BETWEEN INTAKES, FORM STRENGTH 10MG, UNIT DOSE: 10 MG, DURATION-1 D
     Dates: start: 20220819, end: 20220820

REACTIONS (2)
  - Pharyngeal swelling [Recovered/Resolved]
  - Muscle contractions involuntary [Recovered/Resolved]
